FAERS Safety Report 24287077 (Version 1)
Quarter: 2024Q3

REPORT INFORMATION
  Report Type: Spontaneous
  Country: US (occurrence: US)
  Receive Date: 20240905
  Receipt Date: 20240905
  Transmission Date: 20241017
  Serious: Yes (Hospitalization)
  Sender: ANI
  Company Number: US-ANIPHARMA-2024-US-046489

PATIENT
  Sex: Female

DRUGS (1)
  1. CORTICOTROPIN [Suspect]
     Active Substance: CORTICOTROPIN
     Indication: Multiple sclerosis
     Dosage: INJECT 80 UNITS (1ML) SUBCUTANEOUSLY PER DAY
     Route: 058

REACTIONS (2)
  - Hospitalisation [Recovered/Resolved]
  - Product dose omission issue [Unknown]
